FAERS Safety Report 6938504-X (Version None)
Quarter: 2010Q3

REPORT INFORMATION
  Report Type: 
  Country: None (occurrence: None)
  Receive Date: 20100824
  Receipt Date: 20100820
  Transmission Date: 20110219
  Serious: Yes (Hospitalization)
  Sender: FDA-Public Use
  Company Number: DE-SANOFI-AVENTIS-2010SA047971

PATIENT
  Age: 77 Year
  Sex: Female

DRUGS (8)
  1. TAXOTERE [Suspect]
     Route: 041
     Dates: start: 20100721, end: 20100721
  2. TAXOTERE [Suspect]
     Route: 041
     Dates: start: 20100804, end: 20100804
  3. OXALIPLATIN [Suspect]
     Route: 041
     Dates: start: 20100721, end: 20100721
  4. OXALIPLATIN [Suspect]
     Route: 041
     Dates: start: 20100804, end: 20100804
  5. FLUOROURACIL [Suspect]
     Route: 041
     Dates: start: 20100721, end: 20100721
  6. FLUOROURACIL [Suspect]
     Route: 041
     Dates: start: 20100804, end: 20100804
  7. FOLINIC ACID [Suspect]
     Route: 041
     Dates: start: 20100721, end: 20100721
  8. FOLINIC ACID [Suspect]
     Route: 041
     Dates: start: 20100804, end: 20100804

REACTIONS (3)
  - ACUTE PULMONARY OEDEMA [None]
  - CAPILLARY LEAK SYNDROME [None]
  - DYSPNOEA [None]
